FAERS Safety Report 10086055 (Version 1)
Quarter: 2014Q2

REPORT INFORMATION
  Report Type: Report from Study
  Country: US (occurrence: US)
  Receive Date: 20140418
  Receipt Date: 20140418
  Transmission Date: 20141212
  Serious: Yes (Hospitalization)
  Sender: FDA-Public Use
  Company Number: US-ROCHE-1380268

PATIENT
  Age: 54 Year
  Sex: Female

DRUGS (20)
  1. RIBAVIRIN [Suspect]
     Indication: HEPATITIS C
     Dosage: DIVIDED INTO 2 DOSE DAILY
     Route: 048
     Dates: start: 20130604
  2. ABT-450 [Suspect]
     Indication: HEPATITIS C
     Route: 048
     Dates: start: 20130604
  3. ABT-333 [Suspect]
     Indication: HEPATITIS C
     Route: 048
     Dates: start: 20130604
  4. RITONAVIR [Suspect]
     Indication: HEPATITIS C
     Route: 048
     Dates: start: 20130604
  5. ABT-267 (HCV NS5A INHIBITOR) [Suspect]
     Indication: HEPATITIS C
     Route: 048
     Dates: start: 20130604
  6. ACETAMINOPHEN [Concomitant]
     Dosage: 5/325 AS REQUIRED
     Route: 065
     Dates: start: 20120820
  7. ALLOPURINOL [Concomitant]
     Route: 065
     Dates: start: 20110309
  8. AMLODIPINE [Concomitant]
     Indication: HYPERTENSION
     Route: 048
     Dates: start: 20111227, end: 20130924
  9. AMLODIPINE [Concomitant]
     Route: 048
     Dates: start: 20130925, end: 20131007
  10. APIDRA (INSULIN GLULISINE) [Concomitant]
     Indication: DIABETES MELLITUS
     Dosage: SLIDING SCALE  4 IN 1 DAY
     Route: 058
     Dates: start: 20130101
  11. ATENOLOL [Concomitant]
     Route: 048
     Dates: start: 20100429
  12. HYDROXYZINE [Concomitant]
     Route: 048
     Dates: start: 20120820
  13. LEVEMIR [Concomitant]
     Route: 058
     Dates: start: 20130101
  14. METOCLOPRAMIDE [Concomitant]
     Route: 048
     Dates: start: 20131227
  15. OMEGA 3 ACID ETHYL ESTERS [Concomitant]
     Route: 048
     Dates: start: 20120820
  16. SUCRALFATE [Concomitant]
     Route: 048
  17. TIZANIDINE [Concomitant]
     Route: 048
     Dates: start: 20130501
  18. VITAMIN A [Concomitant]
     Route: 048
     Dates: start: 20090123
  19. ZOFRAN [Concomitant]
     Indication: NAUSEA
     Route: 065
     Dates: start: 20130617, end: 20130930
  20. VITAMIN E [Concomitant]
     Route: 048
     Dates: start: 20110412

REACTIONS (2)
  - Oedema peripheral [Recovered/Resolved]
  - Pain in extremity [Recovered/Resolved]
